FAERS Safety Report 23127668 (Version 2)
Quarter: 2023Q4

REPORT INFORMATION
  Report Type: Spontaneous
  Country: EG (occurrence: EG)
  Receive Date: 20231031
  Receipt Date: 20231109
  Transmission Date: 20240110
  Serious: Yes (Hospitalization)
  Sender: FDA-Public Use
  Company Number: EG-NOVOPROD-1131592

PATIENT
  Age: 65 Year
  Sex: Female
  Weight: 85 kg

DRUGS (1)
  1. INSULIN HUMAN [Suspect]
     Active Substance: INSULIN HUMAN
     Indication: Diabetes mellitus
     Dosage: 50 IU AM /20 OR 22 IU PM
     Route: 058

REACTIONS (3)
  - Bone swelling [Recovering/Resolving]
  - Fall [Recovering/Resolving]
  - Coccydynia [Recovering/Resolving]

NARRATIVE: CASE EVENT DATE: 20230904
